FAERS Safety Report 7946183-8 (Version None)
Quarter: 2011Q4

REPORT INFORMATION
  Report Type: 
  Country: None (occurrence: None)
  Receive Date: 20111129
  Receipt Date: 20111118
  Transmission Date: 20120403
  Serious: Yes (Death, Life-Threatening, Hospitalization)
  Sender: FDA-Public Use
  Company Number: JP-GENZYME-THYM-1002919

PATIENT
  Sex: Male
  Weight: 55 kg

DRUGS (6)
  1. LENOGRASTIM [Concomitant]
     Indication: APLASTIC ANAEMIA
     Dosage: UNK
     Dates: start: 20110530, end: 20110610
  2. THYMOGLOBULIN [Suspect]
     Indication: APLASTIC ANAEMIA
     Dosage: 135 MG, QD
     Route: 042
     Dates: start: 20110530, end: 20110603
  3. CYCLOSPORINE [Concomitant]
     Indication: APLASTIC ANAEMIA
     Dosage: UNK
     Dates: start: 20110530, end: 20110703
  4. PLATELETS, CONCENTRATED [Concomitant]
     Indication: APLASTIC ANAEMIA
     Dosage: UNK
     Dates: start: 20110530, end: 20110723
  5. METHYLPREDNISOLONE SODIUM SUCCINATE [Concomitant]
     Indication: APLASTIC ANAEMIA
     Dosage: UNK
     Dates: start: 20110530, end: 20110629
  6. RED BLOOD CELLS, CONCENTRATED [Concomitant]
     Indication: APLASTIC ANAEMIA
     Dosage: UNK
     Dates: start: 20110530, end: 20110723

REACTIONS (5)
  - PNEUMONIA [None]
  - RENAL FAILURE [None]
  - APLASTIC ANAEMIA [None]
  - CYTOMEGALOVIRUS ENTEROCOLITIS [None]
  - HAEMODIALYSIS [None]
